FAERS Safety Report 14171715 (Version 2)
Quarter: 2017Q4

REPORT INFORMATION
  Report Type: Spontaneous
  Country: PL (occurrence: PL)
  Receive Date: 20171108
  Receipt Date: 20171114
  Transmission Date: 20180321
  Serious: Yes (Hospitalization, Other)
  Sender: FDA-Public Use
  Company Number: PL-GLAXOSMITHKLINE-PL2017168897

PATIENT
  Age: 62 Year
  Sex: Male

DRUGS (1)
  1. INCRUSE ELLIPTA [Suspect]
     Active Substance: UMECLIDINIUM BROMIDE
     Indication: CHRONIC OBSTRUCTIVE PULMONARY DISEASE
     Dosage: DOSE AND UNIT NOT SPECIFIED
     Route: 055
     Dates: start: 20170526, end: 20170526

REACTIONS (6)
  - Eye haemorrhage [Unknown]
  - Blood pressure increased [Unknown]
  - Tachycardia [Unknown]
  - Palpitations [Unknown]
  - Myocardial ischaemia [Unknown]
  - Dyspnoea [Unknown]

NARRATIVE: CASE EVENT DATE: 20170526
